FAERS Safety Report 6892427-3 (Version None)
Quarter: 2010Q3

REPORT INFORMATION
  Report Type: 
  Country: None (occurrence: None)
  Receive Date: 20100731
  Receipt Date: 20080422
  Transmission Date: 20110219
  Serious: No
  Sender: FDA-Public Use
  Company Number: US-PFIZER INC-2008035343

PATIENT
  Sex: Female
  Weight: 65 kg

DRUGS (9)
  1. NEURONTIN [Suspect]
     Indication: NEUROPATHY PERIPHERAL
     Dates: start: 20071001
  2. LEVOXYL [Concomitant]
  3. NEXIUM [Concomitant]
  4. TRACLEER [Concomitant]
  5. FEMARA [Concomitant]
  6. PHENOBARBITAL [Concomitant]
  7. PROCARDIA [Concomitant]
  8. ALL OTHER THERAPEUTIC PRODUCTS [Concomitant]
  9. IBANDRONATE SODIUM [Concomitant]
     Route: 042

REACTIONS (1)
  - FAECAL INCONTINENCE [None]
